FAERS Safety Report 10751313 (Version 1)
Quarter: 2015Q1

REPORT INFORMATION
  Report Type: Report from Study
  Country: AU (occurrence: AU)
  Receive Date: 20150130
  Receipt Date: 20150130
  Transmission Date: 20150721
  Serious: Yes (Death, Hospitalization)
  Sender: FDA-Public Use
  Company Number: AU-PFIZER INC-2015024565

PATIENT
  Age: 73 Year
  Sex: Female
  Weight: 63 kg

DRUGS (7)
  1. EPLERENONE. [Suspect]
     Active Substance: EPLERENONE
     Indication: CARDIAC FAILURE CHRONIC
     Dosage: UNKNOWN DOSE
     Route: 048
     Dates: start: 20140416, end: 20140506
  2. EZETIMIBE. [Concomitant]
     Active Substance: EZETIMIBE
     Dosage: UNK
     Dates: start: 20140331
  3. DITHIAZIDE [Suspect]
     Active Substance: HYDROCHLOROTHIAZIDE
     Dosage: UNK
     Dates: start: 20140411
  4. BISOPROLOL [Concomitant]
     Active Substance: BISOPROLOL
     Dosage: UNK
     Dates: start: 20140410
  5. POTASSIUM [Concomitant]
     Active Substance: POTASSIUM
     Dosage: UNK
     Dates: start: 20140428
  6. FRUSEMIDE [Suspect]
     Active Substance: FUROSEMIDE
     Dosage: UNK
     Dates: start: 20140331
  7. ALLOPURINOL. [Concomitant]
     Active Substance: ALLOPURINOL
     Dosage: UNK
     Dates: start: 20140331

REACTIONS (6)
  - Accident [Recovered/Resolved with Sequelae]
  - Dizziness [Unknown]
  - Face injury [Unknown]
  - Subdural haematoma [Fatal]
  - Circulatory collapse [Unknown]
  - Head injury [Unknown]

NARRATIVE: CASE EVENT DATE: 20140506
